FAERS Safety Report 8840851 (Version 2)
Quarter: 2013Q2

REPORT INFORMATION
  Report Type: Report from Study
  Country: AU (occurrence: AU)
  Receive Date: 20121015
  Receipt Date: 20130508
  Transmission Date: 20140414
  Serious: Yes (Other)
  Sender: FDA-Public Use
  Company Number: PHHY2012AU090966

PATIENT
  Age: 64 Year
  Sex: Female

DRUGS (2)
  1. ICL670A [Suspect]
     Indication: IRON OVERLOAD
     Dosage: 500 MG
     Route: 048
     Dates: start: 20120701
  2. ICL670A [Suspect]
     Dosage: 250 MG
     Route: 048

REACTIONS (3)
  - Herpes zoster [Recovered/Resolved]
  - Pigmentation disorder [Unknown]
  - Blister [Unknown]
